FAERS Safety Report 15230149 (Version 2)
Quarter: 2019Q3

REPORT INFORMATION
  Report Type: Spontaneous
  Country: US (occurrence: US)
  Receive Date: 20180802
  Receipt Date: 20190805
  Transmission Date: 20191004
  Serious: Yes (Other)
  Sender: FDA-Public Use
  Company Number: US-ACCORD-066171

PATIENT
  Age: 61 Year
  Sex: Female
  Weight: 119.75 kg

DRUGS (18)
  1. SODIUM CHLORIDE. [Concomitant]
     Active Substance: SODIUM CHLORIDE
     Route: 042
     Dates: start: 20140924, end: 20140924
  2. INSULIN DETEMIR [Concomitant]
     Active Substance: INSULIN DETEMIR
     Dates: start: 2002
  3. BRIMONIDINE [Concomitant]
     Active Substance: BRIMONIDINE TARTRATE
     Dates: start: 2002
  4. LOSARTAN. [Concomitant]
     Active Substance: LOSARTAN
     Dates: start: 2002
  5. DEXAMETHASONE. [Concomitant]
     Active Substance: DEXAMETHASONE
     Route: 042
     Dates: start: 20140917
  6. LASIX [Concomitant]
     Active Substance: FUROSEMIDE
     Dates: start: 2002
  7. JANUVIA [Concomitant]
     Active Substance: SITAGLIPTIN PHOSPHATE
  8. WARFARIN [Concomitant]
     Active Substance: WARFARIN
     Dates: start: 2002
  9. DOCETAXEL ACCORD [Suspect]
     Active Substance: DOCETAXEL
     Indication: BREAST CANCER
     Dosage: NUMBER OF CYCLES: 06
     Route: 042
     Dates: start: 20140917, end: 20141223
  10. TYLENOL EXTRA STRENGTH [Concomitant]
     Active Substance: ACETAMINOPHEN
     Dosage: STREGTH: 500 MG
     Route: 038
     Dates: start: 20140924
  11. ACETYLSALICYLIC ACID [Concomitant]
     Active Substance: ASPIRIN
  12. INSULIN BOVINE [Concomitant]
     Dosage: 3 UNITS ?SUBCUTANEOUS SOLUTION
     Route: 058
     Dates: start: 20140924
  13. TIMOLOL. [Concomitant]
     Active Substance: TIMOLOL
     Dates: start: 2002
  14. ZOFRAN [Concomitant]
     Active Substance: ONDANSETRON HYDROCHLORIDE
     Route: 042
     Dates: start: 20141119
  15. FLUCONAZOLE. [Concomitant]
     Active Substance: FLUCONAZOLE
     Dosage: IN DEXTROSE
     Route: 042
     Dates: start: 20141223, end: 20141223
  16. LEVOTHYROXINE. [Concomitant]
     Active Substance: LEVOTHYROXINE
     Dates: start: 2002
  17. CLONIDINE. [Concomitant]
     Active Substance: CLONIDINE
     Dates: start: 2004
  18. LATANOPROST. [Concomitant]
     Active Substance: LATANOPROST
     Dates: start: 2003

REACTIONS (1)
  - Alopecia [Not Recovered/Not Resolved]
